FAERS Safety Report 21281084 (Version 1)
Quarter: 2022Q3

REPORT INFORMATION
  Report Type: Spontaneous
  Country: TW (occurrence: TW)
  Receive Date: 20220901
  Receipt Date: 20220901
  Transmission Date: 20221027
  Serious: Yes (Hospitalization)
  Sender: FDA-Public Use
  Company Number: TW-MYLANLABS-2022M1090698

PATIENT
  Sex: Female
  Weight: 97.3 kg

DRUGS (8)
  1. EPIRUBICIN [Suspect]
     Active Substance: EPIRUBICIN
     Indication: Vaginal cancer
     Dosage: UNK, CYCLE, AS A PART OF IEP REGIMEN; RECEIVED SIX CYCLES
     Route: 065
  2. EPIRUBICIN [Suspect]
     Active Substance: EPIRUBICIN
     Indication: Neuroendocrine carcinoma
  3. CISPLATIN [Suspect]
     Active Substance: CISPLATIN
     Indication: Vaginal cancer
     Dosage: UNK, CYCLE, AS A PART OF IEP REGIMEN; SIX CYCLES
     Route: 065
  4. CISPLATIN [Suspect]
     Active Substance: CISPLATIN
     Indication: Neuroendocrine carcinoma
     Dosage: 80 MILLIGRAM, QW, AS A PART OF CONCURRENT CHEMORADIATION THERAPY (CCRT) TREATMENT WEEKLY CISPLATIN 8
     Route: 065
  5. BEVACIZUMAB [Suspect]
     Active Substance: BEVACIZUMAB
     Indication: Lymphangiosis carcinomatosa
     Dosage: UNK
     Route: 065
  6. IFOSFAMIDE [Suspect]
     Active Substance: IFOSFAMIDE
     Indication: Vaginal cancer
     Dosage: UNK, CYCLE, AS A PART OF IEP REGIMEN, RECEIVED SIX CYCLES
     Route: 065
  7. IFOSFAMIDE [Suspect]
     Active Substance: IFOSFAMIDE
     Indication: Neuroendocrine carcinoma
  8. PEMBROLIZUMAB [Suspect]
     Active Substance: PEMBROLIZUMAB
     Indication: Lymphangiosis carcinomatosa
     Dosage: UNK
     Route: 065

REACTIONS (4)
  - Drug ineffective [Unknown]
  - Condition aggravated [Unknown]
  - Nausea [Unknown]
  - Fatigue [Unknown]
